FAERS Safety Report 13358414 (Version 1)
Quarter: 2017Q1

REPORT INFORMATION
  Report Type: Spontaneous
  Country: US (occurrence: US)
  Receive Date: 20170322
  Receipt Date: 20170322
  Transmission Date: 20170429
  Serious: Yes (Other)
  Sender: FDA-Public Use
  Company Number: US-PURDUE-USA-2017-0137287

PATIENT
  Sex: Male

DRUGS (2)
  1. COLACE [Suspect]
     Active Substance: DOCUSATE SODIUM
     Indication: CONSTIPATION
     Dosage: 2X 100 MG, SINGLE
     Route: 048
  2. COLACE [Suspect]
     Active Substance: DOCUSATE SODIUM
     Dosage: 100 MG, TID PRN
     Route: 048
     Dates: start: 20170210

REACTIONS (3)
  - Loss of consciousness [Unknown]
  - Bladder spasm [Not Recovered/Not Resolved]
  - Pain in extremity [Not Recovered/Not Resolved]
